FAERS Safety Report 4777477-5 (Version None)
Quarter: 2005Q3

REPORT INFORMATION
  Report Type: 
  Country: None (occurrence: None)
  Receive Date: 20050915
  Receipt Date: 20050907
  Transmission Date: 20060218
  Serious: No
  Sender: FDA-Public Use
  Company Number: 05H-163-0302383-00

PATIENT
  Sex: 0

DRUGS (1)
  1. MORPHINE SULFATE [Suspect]

REACTIONS (8)
  - CEREBRAL VASOCONSTRICTION [None]
  - DRUG EXPOSURE DURING PREGNANCY [None]
  - FOETAL DISORDER [None]
  - FOETAL HEART RATE ABNORMAL [None]
  - HYPOXIA [None]
  - PLACENTAL DISORDER [None]
  - ULTRASOUND DOPPLER ABNORMAL [None]
  - VASOCONSTRICTION [None]
